FAERS Safety Report 10667452 (Version 1)
Quarter: 2014Q4

REPORT INFORMATION
  Report Type: Spontaneous
  Country: CN (occurrence: None)
  Receive Date: 20141218
  Receipt Date: 20141218
  Transmission Date: 20150529
  Serious: Yes (Death, Hospitalization)
  Sender: FDA-Public Use
  Company Number: 2014CVI00041

PATIENT

DRUGS (2)
  1. POTASSIUM SODIUM DEHYDROANDROAN DROGRAPHOLIDE SUCCINATE ) INJECTION [Suspect]
     Active Substance: POTASSIUM SODIUM DEHYDROANDROGRAPHOLIDE SUCCINATE
     Dates: start: 20141125
  2. ZINACEF (CEFUROXIME) INJECTION [Suspect]
     Active Substance: CEFUROXIME SODIUM
     Route: 042
     Dates: start: 20141125

REACTIONS (2)
  - Dyspnoea [None]
  - Dermatitis allergic [None]

NARRATIVE: CASE EVENT DATE: 20141125
